FAERS Safety Report 8815878 (Version 2)
Quarter: 2014Q3

REPORT INFORMATION
  Report Type: Report from Study
  Country: US (occurrence: US)
  Receive Date: 20120928
  Receipt Date: 20140827
  Transmission Date: 20150326
  Serious: Yes (Hospitalization, Other)
  Sender: FDA-Public Use
  Company Number: US-ROCHE-1126217

PATIENT
  Sex: Female
  Weight: 56 kg

DRUGS (7)
  1. TAXOL [Concomitant]
     Active Substance: PACLITAXEL
  2. AVASTIN [Suspect]
     Active Substance: BEVACIZUMAB
     Indication: BREAST CANCER METASTATIC
  3. HERCEPTIN [Suspect]
     Active Substance: TRASTUZUMAB
     Indication: BREAST CANCER FEMALE
     Route: 065
  4. AVASTIN [Suspect]
     Active Substance: BEVACIZUMAB
     Indication: BREAST CANCER FEMALE
     Route: 042
  5. NAVELBINE [Concomitant]
     Active Substance: VINORELBINE TARTRATE
  6. XELODA [Suspect]
     Active Substance: CAPECITABINE
     Indication: PRODUCT USED FOR UNKNOWN INDICATION
     Route: 065
  7. AROMASIN [Concomitant]
     Active Substance: EXEMESTANE

REACTIONS (11)
  - Metastases to spine [Unknown]
  - Diplopia [Unknown]
  - Femur fracture [Unknown]
  - Pain [Unknown]
  - Tumour marker increased [Unknown]
  - Back pain [Unknown]
  - Disease progression [Unknown]
  - Pain in extremity [Unknown]
  - Metastases to bone [Unknown]
  - Bone pain [Unknown]
  - Off label use [Unknown]
